FAERS Safety Report 4294933-7 (Version None)
Quarter: 2004Q1

REPORT INFORMATION
  Report Type: 
  Country: None (occurrence: None)
  Receive Date: 20040216
  Receipt Date: 20030304
  Transmission Date: 20041129
  Serious: No
  Sender: FDA-Public Use
  Company Number: US-GLAXOSMITHKLINE-A0398933A

PATIENT
  Age: 43 Year
  Sex: Female

DRUGS (6)
  1. LAMICTAL [Suspect]
     Dosage: 25MG TWICE PER DAY
     Route: 048
     Dates: start: 20030114, end: 20030226
  2. THORAZINE [Concomitant]
  3. LITHIUM CARBONATE [Concomitant]
  4. TOPAMAX [Concomitant]
  5. EFFEXOR XR [Concomitant]
  6. NAVANE [Concomitant]

REACTIONS (4)
  - ARTHRALGIA [None]
  - BONE PAIN [None]
  - MUSCULAR WEAKNESS [None]
  - PSYCHOTIC DISORDER [None]
